FAERS Safety Report 15708923 (Version 1)
Quarter: 2018Q4

REPORT INFORMATION
  Report Type: Report from Study
  Country: CA (occurrence: CA)
  Receive Date: 20181211
  Receipt Date: 20181211
  Transmission Date: 20190205
  Serious: Yes (Other)
  Sender: FDA-Public Use
  Company Number: PHHY2016CA032139

PATIENT
  Age: 78 Year
  Sex: Female

DRUGS (2)
  1. SANDOSTATIN LAR DEPOT [Suspect]
     Active Substance: OCTREOTIDE ACETATE
     Indication: CARCINOID SYNDROME
     Dosage: 30 MG, QMO (EVERY 4 WEEKS)
     Route: 030
     Dates: start: 20160203
  2. BISOPROLOL [Concomitant]
     Active Substance: BISOPROLOL
     Indication: PRODUCT USED FOR UNKNOWN INDICATION
     Dosage: 0.5 DF, DAILY (5MG TAB)
     Route: 065

REACTIONS (19)
  - Ejection fraction decreased [Unknown]
  - Liver function test increased [Unknown]
  - Feeding disorder [Unknown]
  - Injection site pain [Unknown]
  - Hypokinesia [Unknown]
  - Blood pressure systolic increased [Unknown]
  - Chills [Not Recovered/Not Resolved]
  - Decreased appetite [Unknown]
  - Malaise [Unknown]
  - Diarrhoea [Unknown]
  - Flatulence [Unknown]
  - Injection site pruritus [Unknown]
  - Night sweats [Not Recovered/Not Resolved]
  - Injection site haemorrhage [Unknown]
  - Dyspnoea [Unknown]
  - Blood pressure diastolic decreased [Unknown]
  - Blood glucose increased [Unknown]
  - Abdominal pain [Unknown]
  - Hyperglycaemia [Unknown]

NARRATIVE: CASE EVENT DATE: 20160304
